FAERS Safety Report 24037219 (Version 2)
Quarter: 2024Q3

REPORT INFORMATION
  Report Type: Spontaneous
  Country: JP (occurrence: JP)
  Receive Date: 20240701
  Receipt Date: 20240702
  Transmission Date: 20241017
  Serious: No
  Sender: CSL BEHRING
  Company Number: JP-BEH-2024174529

PATIENT

DRUGS (1)
  1. HIZENTRA [Suspect]
     Active Substance: HUMAN IMMUNOGLOBULIN G
     Indication: Immunoglobulin therapy
     Dosage: UNK, Q3W
     Route: 065

REACTIONS (2)
  - Hepatitis B surface antibody positive [Unknown]
  - Off label use [Unknown]
